FAERS Safety Report 20063342 (Version 1)
Quarter: 2021Q4

REPORT INFORMATION
  Report Type: Spontaneous
  Country: US (occurrence: US)
  Receive Date: 20211112
  Receipt Date: 20211112
  Transmission Date: 20220303
  Serious: Yes (Life-Threatening, Disabling, Other)
  Sender: FDA-Public Use
  Company Number: US-MYLANLABS-2021M1079706

PATIENT
  Sex: Female

DRUGS (1)
  1. XULANE [Suspect]
     Active Substance: ETHINYL ESTRADIOL\NORELGESTROMIN
     Indication: Product used for unknown indication
     Dosage: 150/35 MCG A NEW PATCH WEEKLY FOR 3 WEEKS, REMOVE FOR ONE WEEK
     Route: 062

REACTIONS (4)
  - Cerebral haemorrhage [Unknown]
  - Embolism venous [Unknown]
  - Injury [Unknown]
  - Product label issue [Unknown]

NARRATIVE: CASE EVENT DATE: 20191020
